FAERS Safety Report 17824803 (Version 2)
Quarter: 2020Q2

REPORT INFORMATION
  Report Type: Spontaneous
  Country: CH (occurrence: CH)
  Receive Date: 20200526
  Receipt Date: 20200623
  Transmission Date: 20200714
  Serious: Yes (Hospitalization)
  Sender: FDA-Public Use
  Company Number: NVSC2020CH139322

PATIENT
  Sex: Male

DRUGS (12)
  1. DAFALGAN [Concomitant]
     Active Substance: ACETAMINOPHEN
     Indication: PRODUCT USED FOR UNKNOWN INDICATION
     Dosage: 500 MG (MAXIMUM 2/2/2/2)
     Route: 065
     Dates: start: 20200206, end: 20200208
  2. PROPOFOL. [Concomitant]
     Active Substance: PROPOFOL
     Indication: SURGERY
     Dosage: UNK UKN
     Route: 065
     Dates: start: 20200206
  3. EPHEDRINE. [Concomitant]
     Active Substance: EPHEDRINE
     Indication: SURGERY
     Dosage: UNK UKN
     Route: 065
     Dates: start: 20200206
  4. TORADOL [Concomitant]
     Active Substance: KETOROLAC TROMETHAMINE
     Indication: SURGERY
     Dosage: UNK UKN
     Route: 065
     Dates: start: 20200206
  5. LEVETIRACETAM SANDOZ [Suspect]
     Active Substance: LEVETIRACETAM
     Indication: GENERALISED TONIC-CLONIC SEIZURE
     Dosage: 500 MG, BID
     Route: 048
     Dates: start: 201907, end: 20200224
  6. FENTANYL. [Concomitant]
     Active Substance: FENTANYL
     Indication: SURGERY
     Dosage: UNK UKN
     Route: 065
     Dates: start: 20200206
  7. PANTOPRAZOLE [Concomitant]
     Active Substance: PANTOPRAZOLE
     Indication: PRODUCT USED FOR UNKNOWN INDICATION
     Dosage: 40 MG, QD
     Route: 065
     Dates: start: 20200206, end: 20200208
  8. SILDENAFIL. [Concomitant]
     Active Substance: SILDENAFIL
     Indication: PRODUCT USED FOR UNKNOWN INDICATION
     Dosage: UNK UKN, PRN
     Route: 065
  9. VOLTAREN [Concomitant]
     Active Substance: DICLOFENAC SODIUM
     Indication: PRODUCT USED FOR UNKNOWN INDICATION
     Dosage: 50 MG
     Route: 065
     Dates: start: 20200206, end: 20200208
  10. OLFEN [Concomitant]
     Indication: PRODUCT USED FOR UNKNOWN INDICATION
     Dosage: 50 MG (MAXIMUM 1/1/0/1)
     Route: 065
  11. CATAPRESAN [Concomitant]
     Active Substance: CLONIDINE
     Indication: SURGERY
     Dosage: UNK UKN
     Route: 065
     Dates: start: 20200206
  12. CEFUROXIME. [Concomitant]
     Active Substance: CEFUROXIME
     Indication: SURGERY
     Dosage: UNK UKN
     Route: 065
     Dates: start: 20200206

REACTIONS (2)
  - Epilepsy [Recovered/Resolved]
  - Anticonvulsant drug level below therapeutic [Unknown]

NARRATIVE: CASE EVENT DATE: 20200224
